FAERS Safety Report 8559947-7 (Version None)
Quarter: 2012Q3

REPORT INFORMATION
  Report Type: 
  Country: None (occurrence: None)
  Receive Date: 20120802
  Receipt Date: 20120731
  Transmission Date: 20120928
  Serious: No
  Sender: FDA-Public Use
  Company Number: US-TEVA-349814USA

PATIENT
  Sex: Female
  Weight: 86.26 kg

DRUGS (3)
  1. PLAN B ONE-STEP [Suspect]
     Indication: POST COITAL CONTRACEPTION
     Dosage: 1.5 MILLIGRAM;
     Route: 048
     Dates: start: 20120715, end: 20120715
  2. NORGESTIMATE AND ETHINYL ESTRADIOL [Concomitant]
     Indication: CONTRACEPTION
     Dates: start: 20120624
  3. TWO TABLET MORNING AFTER PILL [Suspect]
     Indication: POST COITAL CONTRACEPTION
     Dates: start: 20120713, end: 20120714

REACTIONS (1)
  - MENSTRUATION IRREGULAR [None]
